FAERS Safety Report 5097151-8 (Version None)
Quarter: 2006Q3

REPORT INFORMATION
  Report Type: 
  Country: None (occurrence: None)
  Receive Date: 20060906
  Receipt Date: 20060824
  Transmission Date: 20061208
  Serious: Yes (Hospitalization)
  Sender: FDA-Public Use
  Company Number: FR-JNJFOC-20060900484

PATIENT
  Age: 87 Year
  Sex: Female

DRUGS (5)
  1. TOPALGIC [Suspect]
     Indication: MUSCULOSKELETAL CHEST PAIN
     Route: 048
  2. DITROPAN [Interacting]
     Indication: DRUG USE FOR UNKNOWN INDICATION
     Route: 048
  3. RENITEC [Concomitant]
     Route: 048
  4. OMERPRAZOLE [Concomitant]
     Route: 048
  5. ZELITREX [Concomitant]
     Indication: MUSCULOSKELETAL PAIN
     Route: 048

REACTIONS (4)
  - CONFUSIONAL STATE [None]
  - DRUG INTERACTION [None]
  - DYSPHAGIA [None]
  - DYSPNOEA [None]
